FAERS Safety Report 9919424 (Version 1)
Quarter: 2014Q1

REPORT INFORMATION
  Report Type: Spontaneous
  Country: US (occurrence: US)
  Receive Date: 20140224
  Receipt Date: 20140224
  Transmission Date: 20141002
  Serious: Yes (Other)
  Sender: FDA-Public Use
  Company Number: US-UCBSA-112972

PATIENT
  Age: 32 Year
  Sex: Male

DRUGS (2)
  1. CIMZIA [Suspect]
     Indication: CROHN^S DISEASE
  2. CLOZAPINE [Suspect]
     Route: 048
     Dates: end: 20140114

REACTIONS (2)
  - Leukopenia [Unknown]
  - Granulocytopenia [Unknown]
